FAERS Safety Report 10153573 (Version 2)
Quarter: 2014Q2

REPORT INFORMATION
  Report Type: Spontaneous
  Country: DE (occurrence: DE)
  Receive Date: 20140505
  Receipt Date: 20140505
  Transmission Date: 20141212
  Serious: Yes (Life-Threatening, Hospitalization)
  Sender: FDA-Public Use
  Company Number: DE-009507513-1404DEU008897

PATIENT
  Age: 33 Year
  Sex: Male

DRUGS (1)
  1. TIMOTHY GRASS POLLEN ALLERGEN EXTRACT [Suspect]
     Indication: HYPERSENSITIVITY
     Dosage: 75000 SQ-T, ONCE
     Route: 060
     Dates: start: 201404

REACTIONS (3)
  - Stridor [Recovered/Resolved]
  - Laryngeal oedema [Recovered/Resolved]
  - Lip swelling [Recovered/Resolved]
